FAERS Safety Report 20538147 (Version 1)
Quarter: 2022Q1

REPORT INFORMATION
  Report Type: Report from Study
  Country: GB (occurrence: GB)
  Receive Date: 20220302
  Receipt Date: 20220302
  Transmission Date: 20220423
  Serious: Yes (Other)
  Sender: FDA-Public Use
  Company Number: GB-JNJFOC-20210912086

PATIENT
  Age: 5 Decade
  Sex: Male

DRUGS (7)
  1. STELARA [Suspect]
     Active Substance: USTEKINUMAB
     Indication: Psoriatic arthropathy
     Route: 058
     Dates: start: 202109
  2. STELARA [Suspect]
     Active Substance: USTEKINUMAB
  3. PREDNISOLONE [Concomitant]
     Active Substance: PREDNISOLONE
  4. COCODAMOL [Concomitant]
     Active Substance: ACETAMINOPHEN\CODEINE PHOSPHATE
  5. VENLAFAXINE [Concomitant]
     Active Substance: VENLAFAXINE HYDROCHLORIDE
  6. NAPROXEN [Concomitant]
     Active Substance: NAPROXEN
  7. ASPIRIN [Concomitant]
     Active Substance: ASPIRIN

REACTIONS (2)
  - Optic neuritis [Unknown]
  - Product dose omission issue [Unknown]

NARRATIVE: CASE EVENT DATE: 20210101
